FAERS Safety Report 4556767-5 (Version None)
Quarter: 2005Q1

REPORT INFORMATION
  Report Type: 
  Country: None (occurrence: None)
  Receive Date: 20050114
  Receipt Date: 20041227
  Transmission Date: 20050727
  Serious: Yes (Other)
  Sender: FDA-Public Use
  Company Number: 2004106578

PATIENT
  Age: 80 Year
  Sex: Male

DRUGS (1)
  1. BEXTRA [Suspect]
     Indication: ILL-DEFINED DISORDER
     Dosage: 10 MG (10 MG, DAILY INTERVAL: EVERY DAY), ORAL
     Route: 048
     Dates: start: 20041015, end: 20041025

REACTIONS (5)
  - GINGIVAL SWELLING [None]
  - LOCALISED OEDEMA [None]
  - RASH GENERALISED [None]
  - SWELLING FACE [None]
  - SWOLLEN TONGUE [None]
